FAERS Safety Report 6103507-4 (Version None)
Quarter: 2009Q1

REPORT INFORMATION
  Report Type: 
  Country: None (occurrence: None)
  Receive Date: 20090302
  Receipt Date: 20090213
  Transmission Date: 20090719
  Serious: Yes (Hospitalization, Other)
  Sender: FDA-Public Use
  Company Number: A-NJ2008-21907

PATIENT
  Age: 59 Year
  Sex: Female

DRUGS (3)
  1. TRACLEER [Suspect]
     Indication: PULMONARY HYPERTENSION
     Dosage: ORAL
     Route: 048
     Dates: start: 20080719
  2. DIOVAN [Concomitant]
  3. PREDNISONE TAB [Concomitant]

REACTIONS (4)
  - OFF LABEL USE [None]
  - PNEUMONIA [None]
  - RESPIRATORY TRACT CONGESTION [None]
  - SINUSITIS [None]
